FAERS Safety Report 14677420 (Version 2)
Quarter: 2019Q1

REPORT INFORMATION
  Report Type: Report from Study
  Country: ES (occurrence: ES)
  Receive Date: 20180325
  Receipt Date: 20190103
  Transmission Date: 20190417
  Serious: Yes (Life-Threatening, Hospitalization, Other)
  Sender: FDA-Public Use
  Company Number: ES-MYLANLABS-2018M1017303

PATIENT
  Age: 30 Year
  Sex: Female

DRUGS (6)
  1. QUETIAPINA [Concomitant]
     Active Substance: QUETIAPINE
     Indication: PRODUCT USED FOR UNKNOWN INDICATION
     Dosage: UNK, QD, (0-0-1)
     Route: 048
     Dates: end: 20170507
  2. BRINTELLIX [Concomitant]
     Active Substance: VORTIOXETINE HYDROBROMIDE
     Indication: PRODUCT USED FOR UNKNOWN INDICATION
     Dosage: UNK, QD,(1-0-0)
     Route: 048
     Dates: start: 20160312, end: 20170507
  3. OMEPRAZOLE. [Suspect]
     Active Substance: OMEPRAZOLE
     Indication: PRODUCT USED FOR UNKNOWN INDICATION
     Dosage: UNK, (20 CPS)
     Route: 048
     Dates: start: 20170507, end: 20170507
  4. TRANXILIUM [Interacting]
     Active Substance: CLORAZEPATE DIPOTASSIUM
     Indication: PRODUCT USED FOR UNKNOWN INDICATION
     Dosage: UNK, (2 BLISTER)
     Route: 048
     Dates: start: 20170507, end: 20170507
  5. LYRICA [Interacting]
     Active Substance: PREGABALIN
     Indication: PRODUCT USED FOR UNKNOWN INDICATION
     Dosage: UNK, (5 BLISTER)
     Route: 048
     Dates: start: 20170507, end: 20170507
  6. TOPAMAX [Interacting]
     Active Substance: TOPIRAMATE
     Indication: PRODUCT USED FOR UNKNOWN INDICATION
     Dosage: UNK, (6 BLISTER)
     Route: 048
     Dates: start: 20170507, end: 20170507

REACTIONS (6)
  - Somnolence [Recovered/Resolved]
  - Respiratory failure [Recovered/Resolved]
  - Suicide attempt [Unknown]
  - Metabolic acidosis [Recovered/Resolved]
  - Pancreatitis [Recovered/Resolved]
  - Drug interaction [Unknown]

NARRATIVE: CASE EVENT DATE: 20170507
